FAERS Safety Report 24973459 (Version 1)
Quarter: 2025Q1

REPORT INFORMATION
  Report Type: Report from Study
  Country: US (occurrence: US)
  Receive Date: 20250216
  Receipt Date: 20250216
  Transmission Date: 20250408
  Serious: Yes (Other)
  Sender: ALEXION PHARMACEUTICALS
  Company Number: US-ASTRAZENECA-202502USA008511US

PATIENT

DRUGS (1)
  1. STRENSIQ [Suspect]
     Active Substance: ASFOTASE ALFA
     Route: 065

REACTIONS (5)
  - Neuropathy peripheral [Unknown]
  - Biliary tract disorder [Unknown]
  - Paraesthesia [Unknown]
  - Muscle disorder [Unknown]
  - Vitamin B6 deficiency [Unknown]
